FAERS Safety Report 6448895-4 (Version None)
Quarter: 2009Q4

REPORT INFORMATION
  Report Type: 
  Country: None (occurrence: None)
  Receive Date: 20091120
  Receipt Date: 20091110
  Transmission Date: 20100525
  Serious: Yes (Other)
  Sender: FDA-Public Use
  Company Number: US-PFIZER INC-2009296264

PATIENT
  Sex: Female

DRUGS (10)
  1. SUTENT [Suspect]
     Indication: METASTATIC RENAL CELL CARCINOMA
     Dosage: 50 MG, 1X/DAY X 4 WEEKS/OFF 2 WEEKS
     Route: 048
     Dates: start: 20090826, end: 20091101
  2. ALAVERT [Concomitant]
     Indication: HYPERSENSITIVITY
     Dosage: 10 MG, UNK
     Route: 048
  3. ALAVERT [Concomitant]
     Indication: COUGH
  4. ROBITUSSIN COUGH SOOTHER [Concomitant]
     Indication: COUGH
     Dosage: 15 MG, Q4H PRN
     Route: 048
     Dates: start: 20090901
  5. ZOMETA [Concomitant]
     Indication: OSTEOPOROSIS
     Dosage: Q MONTH
     Route: 042
     Dates: start: 20090801
  6. ZOMETA [Concomitant]
     Indication: METASTASES TO BONE
  7. CALTRATE + D [Concomitant]
     Indication: MINERAL SUPPLEMENTATION
     Dosage: 600 MG, 2X/DAY
     Route: 048
  8. VITAMIN D [Concomitant]
     Indication: SUPPLEMENTATION THERAPY
     Dosage: UNK
     Route: 048
  9. CENTRUM SILVER [Concomitant]
     Indication: SUPPLEMENTATION THERAPY
     Dosage: UNK
     Route: 048
  10. VITAMIN B COMPLEX CAP [Concomitant]
     Indication: SUPPLEMENTATION THERAPY
     Dosage: UNK
     Route: 048

REACTIONS (10)
  - ALOPECIA [None]
  - BLOOD PRESSURE INCREASED [None]
  - DECREASED APPETITE [None]
  - ERYTHEMA [None]
  - FATIGUE [None]
  - HAEMORRHAGE [None]
  - OEDEMA PERIPHERAL [None]
  - PLATELET COUNT DECREASED [None]
  - PURPURA [None]
  - YELLOW SKIN [None]
